FAERS Safety Report 17140750 (Version 1)
Quarter: 2019Q4

REPORT INFORMATION
  Report Type: Report from Study
  Country: None (occurrence: PR)
  Receive Date: 20191211
  Receipt Date: 20191211
  Transmission Date: 20200122
  Serious: Yes (Hospitalization)
  Sender: FDA-Public Use
  Company Number: PR-ABBVIE-19K-131-2818223-00

PATIENT
  Sex: Male
  Weight: 58.11 kg

DRUGS (5)
  1. GABAPENTIN. [Concomitant]
     Active Substance: GABAPENTIN
     Indication: NEUROPATHY PERIPHERAL
     Route: 048
     Dates: start: 2018
  2. HUMIRA [Suspect]
     Active Substance: ADALIMUMAB
     Indication: RHEUMATOID ARTHRITIS
     Route: 058
     Dates: start: 20170620, end: 20190410
  3. HUMIRA [Suspect]
     Active Substance: ADALIMUMAB
     Indication: RHEUMATOID ARTHRITIS
     Route: 058
     Dates: start: 201906
  4. PREDNISONE. [Concomitant]
     Active Substance: PREDNISONE
     Indication: RHEUMATOID ARTHRITIS
     Route: 048
     Dates: start: 1985
  5. PEPCID [Concomitant]
     Active Substance: FAMOTIDINE
     Indication: REFLUX GASTRITIS
     Route: 048
     Dates: start: 2018

REACTIONS (10)
  - Influenza [Recovered/Resolved]
  - Nasopharyngitis [Recovered/Resolved]
  - Immunodeficiency [Unknown]
  - Arthralgia [Not Recovered/Not Resolved]
  - Haemoglobin decreased [Unknown]
  - Limb discomfort [Not Recovered/Not Resolved]
  - Arthritis [Unknown]
  - Degenerative bone disease [Unknown]
  - Dermatitis [Recovered/Resolved]
  - Ankle fracture [Recovering/Resolving]

NARRATIVE: CASE EVENT DATE: 201709
